FAERS Safety Report 19406047 (Version 2)
Quarter: 2021Q2

REPORT INFORMATION
  Report Type: Spontaneous
  Country: US (occurrence: US)
  Receive Date: 20210611
  Receipt Date: 20210618
  Transmission Date: 20210717
  Serious: No
  Sender: FDA-Public Use
  Company Number: US-ORGANON-O2106USA000550

PATIENT
  Sex: Male

DRUGS (2)
  1. STERILE WATER [Suspect]
     Active Substance: WATER
     Dosage: UNK
  2. PREGNYL [Suspect]
     Active Substance: CHORIOGONADOTROPIN ALFA
     Dosage: 100 UNITS, 3X A WEEK
     Route: 030

REACTIONS (4)
  - Wrong technique in product usage process [Unknown]
  - No adverse event [Unknown]
  - Product leakage [Unknown]
  - Product packaging quantity issue [Unknown]

NARRATIVE: CASE EVENT DATE: 20210602
